FAERS Safety Report 24726021 (Version 1)
Quarter: 2024Q4

REPORT INFORMATION
  Report Type: Spontaneous
  Country: US (occurrence: US)
  Receive Date: 20241212
  Receipt Date: 20241212
  Transmission Date: 20250114
  Serious: No
  Sender: SANDOZ
  Company Number: US-SANDOZ-SDZ2024US101207

PATIENT

DRUGS (1)
  1. CIMERLI [Suspect]
     Active Substance: RANIBIZUMAB-EQRN
     Indication: Product used for unknown indication
     Dosage: 0.05 MG, QMO
     Route: 050

REACTIONS (2)
  - Product preparation issue [Unknown]
  - Product contamination [Unknown]

NARRATIVE: CASE EVENT DATE: 20241206
